FAERS Safety Report 24927831 (Version 2)
Quarter: 2025Q1

REPORT INFORMATION
  Report Type: Spontaneous
  Country: SY (occurrence: SY)
  Receive Date: 20250205
  Receipt Date: 20250214
  Transmission Date: 20250408
  Serious: Yes (Other)
  Sender: ACCORD
  Company Number: SY-Accord-467739

PATIENT
  Age: 36 Year
  Sex: Male

DRUGS (1)
  1. FLUOROURACIL [Suspect]
     Active Substance: FLUOROURACIL
     Indication: Basal cell naevus syndrome
     Dosage: 50 MG/ML EVERY 2 WEEKS FOR SIX SESSIONS
     Route: 026
     Dates: start: 2023

REACTIONS (5)
  - Erythema [Unknown]
  - Ulcer [Unknown]
  - Necrosis [Unknown]
  - Discomfort [Unknown]
  - Scab [Unknown]
